FAERS Safety Report 19031240 (Version 1)
Quarter: 2021Q1

REPORT INFORMATION
  Report Type: Spontaneous
  Country: US (occurrence: US)
  Receive Date: 20210318
  Receipt Date: 20210318
  Transmission Date: 20210420
  Serious: Yes (Other)
  Sender: FDA-Public Use
  Company Number: None

PATIENT
  Age: 35 Year
  Sex: Female
  Weight: 65.25 kg

DRUGS (1)
  1. MAC STUDIO FIX FLUID SPF 15 [Suspect]
     Active Substance: OCTINOXATE\TITANIUM DIOXIDE
     Indication: SKIN DISORDER
     Dates: start: 20201228, end: 20210202

REACTIONS (6)
  - Pain [None]
  - Rash macular [None]
  - Nausea [None]
  - Illness [None]
  - Visual impairment [None]
  - Headache [None]

NARRATIVE: CASE EVENT DATE: 20210202
